FAERS Safety Report 9947661 (Version 1)
Quarter: 2014Q1

REPORT INFORMATION
  Report Type: Spontaneous
  Country: US (occurrence: US)
  Receive Date: 20140303
  Receipt Date: 20140303
  Transmission Date: 20141002
  Serious: No
  Sender: FDA-Public Use
  Company Number: US-ABBVIE-13P-163-1056303-00

PATIENT
  Age: 30 Year
  Sex: Female
  Weight: 54.03 kg

DRUGS (4)
  1. HUMIRA [Suspect]
     Indication: CROHN^S DISEASE
     Route: 058
     Dates: start: 201109, end: 20130214
  2. HUMIRA [Suspect]
     Indication: COLITIS ULCERATIVE
  3. ASACOL [Concomitant]
     Indication: CROHN^S DISEASE
  4. IMURAN [Concomitant]
     Indication: CROHN^S DISEASE

REACTIONS (2)
  - Folliculitis [Recovered/Resolved]
  - Rash generalised [Recovered/Resolved]
